FAERS Safety Report 4729557-8 (Version None)
Quarter: 2005Q3

REPORT INFORMATION
  Report Type: 
  Country: None (occurrence: None)
  Receive Date: 20050801
  Receipt Date: 20040510
  Transmission Date: 20060218
  Serious: Yes (Hospitalization, Other)
  Sender: FDA-Public Use
  Company Number: US-MERCK-0405USA00644

PATIENT
  Age: 74 Year
  Sex: Male
  Weight: 91 kg

DRUGS (4)
  1. VIOXX [Suspect]
     Indication: ARTHRALGIA
     Route: 048
     Dates: start: 20001208, end: 20010701
  2. VIOXX [Suspect]
     Indication: PAIN IN EXTREMITY
     Route: 048
     Dates: start: 20001208, end: 20010701
  3. COUMADIN [Concomitant]
     Route: 065
  4. CELEBREX [Concomitant]
     Route: 065

REACTIONS (19)
  - BENIGN PROSTATIC HYPERPLASIA [None]
  - CARDIOMYOPATHY [None]
  - CAROTID ARTERY STENOSIS [None]
  - CEREBROVASCULAR ACCIDENT [None]
  - DRUG ADMINISTRATION ERROR [None]
  - DRUG HYPERSENSITIVITY [None]
  - DRUG INEFFECTIVE [None]
  - FATIGUE [None]
  - HAEMORRHOIDS [None]
  - HEMIANOPIA [None]
  - HYPERTENSION [None]
  - HYPOAESTHESIA [None]
  - INTERNATIONAL NORMALISED RATIO DECREASED [None]
  - INTERNATIONAL NORMALISED RATIO INCREASED [None]
  - INTRACRANIAL ANEURYSM [None]
  - LUMBAR SPINAL STENOSIS [None]
  - RADICULAR PAIN [None]
  - SCIATICA [None]
  - VISUAL ACUITY REDUCED [None]
